FAERS Safety Report 21874710 (Version 1)
Quarter: 2023Q1

REPORT INFORMATION
  Report Type: Spontaneous
  Country: US (occurrence: None)
  Receive Date: 20230117
  Receipt Date: 20230117
  Transmission Date: 20230418
  Serious: No
  Sender: FDA-Public Use
  Company Number: 2022A418577

PATIENT
  Age: 928 Month
  Sex: Female
  Weight: 63.5 kg

DRUGS (1)
  1. BYDUREON BCISE [Suspect]
     Active Substance: EXENATIDE
     Indication: Diabetes mellitus
     Route: 058
     Dates: start: 201807

REACTIONS (8)
  - Blood glucose increased [Unknown]
  - Hypoacusis [Unknown]
  - Injection site pain [Not Recovered/Not Resolved]
  - Fatigue [Unknown]
  - Wrong technique in device usage process [Not Recovered/Not Resolved]
  - Incorrect dose administered by device [Not Recovered/Not Resolved]
  - Device malfunction [Unknown]
  - Intentional device use issue [Not Recovered/Not Resolved]

NARRATIVE: CASE EVENT DATE: 20180701
